FAERS Safety Report 6260813-0 (Version None)
Quarter: 2009Q3

REPORT INFORMATION
  Report Type: 
  Country: None (occurrence: None)
  Receive Date: 20090708
  Receipt Date: 20090623
  Transmission Date: 20100115
  Serious: Yes (Hospitalization)
  Sender: FDA-Public Use
  Company Number: FR-GENENTECH-282547

PATIENT
  Sex: Female

DRUGS (11)
  1. RITUXIMAB [Suspect]
     Indication: CHRONIC LYMPHOCYTIC LEUKAEMIA
     Dosage: 955 MG, QD
     Route: 042
     Dates: start: 20080715
  2. FLUDARA [Suspect]
     Indication: CHRONIC LYMPHOCYTIC LEUKAEMIA
     Dosage: 70 MG, QD
     Route: 002
     Dates: start: 20080715
  3. ENDOXAN [Suspect]
     Indication: NEOPLASM MALIGNANT
     Dosage: 450 MG, QD
     Route: 002
     Dates: start: 20080715
  4. TAREG [Concomitant]
     Indication: DRUG USE FOR UNKNOWN INDICATION
  5. CONCOMITANT DRUG [Concomitant]
     Indication: DRUG USE FOR UNKNOWN INDICATION
  6. IXPRIM [Concomitant]
     Indication: DRUG USE FOR UNKNOWN INDICATION
  7. CACIT [Concomitant]
     Indication: DRUG USE FOR UNKNOWN INDICATION
  8. SERETIDE [Concomitant]
     Indication: DRUG USE FOR UNKNOWN INDICATION
  9. ZELITREX [Concomitant]
     Indication: DRUG USE FOR UNKNOWN INDICATION
  10. BRONCHODUAL [Concomitant]
     Indication: DRUG USE FOR UNKNOWN INDICATION
  11. FENOFIBRATE [Concomitant]
     Indication: DRUG USE FOR UNKNOWN INDICATION

REACTIONS (1)
  - BRONCHOPULMONARY ASPERGILLOSIS [None]
